FAERS Safety Report 7159162-8 (Version None)
Quarter: 2010Q4

REPORT INFORMATION
  Report Type: 
  Country: None (occurrence: None)
  Receive Date: 20101214
  Receipt Date: 20101202
  Transmission Date: 20110411
  Serious: Yes (Hospitalization)
  Sender: FDA-Public Use
  Company Number: US-ELI_LILLY_AND_COMPANY-US201012001002

PATIENT
  Age: 62 Year
  Sex: Female

DRUGS (10)
  1. FORTEO [Suspect]
     Indication: OSTEOPOROSIS
     Dosage: 20 UG, DAILY (1/D)
     Dates: start: 20100501, end: 20101123
  2. FORTEO [Suspect]
     Dosage: 20 UG, DAILY (1/D)
     Dates: start: 20101127
  3. EFFEXOR [Concomitant]
     Dosage: 300 MG, DAILY (1/D)
  4. TOPAMAX [Concomitant]
     Dosage: 25 MG, 2/D
  5. ASPIRIN [Concomitant]
     Dosage: 81 MG, DAILY (1/D)
  6. PRILOSEC [Concomitant]
     Dosage: 1 D/F, DAILY (1/D)
  7. KLONOPIN [Concomitant]
     Dosage: 1 MG, 2/D
  8. ELAVIL [Concomitant]
     Dosage: 50 MG, EACH EVENING
  9. VITAMIN D [Concomitant]
  10. XANAX [Concomitant]
     Dosage: 1 MG, AS NEEDED

REACTIONS (2)
  - DEHYDRATION [None]
  - INTESTINAL OBSTRUCTION [None]
